FAERS Safety Report 5277294-6 (Version None)
Quarter: 2007Q1

REPORT INFORMATION
  Report Type: 
  Country: None (occurrence: None)
  Receive Date: 20070327
  Receipt Date: 20070321
  Transmission Date: 20070707
  Serious: Yes (Death, Hospitalization)
  Sender: FDA-Public Use
  Company Number: GB-BRISTOL-MYERS SQUIBB COMPANY-13672183

PATIENT
  Age: 53 Year
  Sex: Male

DRUGS (9)
  1. CETUXIMAB [Suspect]
     Indication: COLORECTAL CANCER
     Route: 042
     Dates: start: 20061221, end: 20061221
  2. OXALIPLATIN [Suspect]
     Indication: COLORECTAL CANCER
     Dates: start: 20061129, end: 20061129
  3. CAPECITABINE [Suspect]
     Indication: COLORECTAL CANCER
     Route: 048
     Dates: start: 20061207, end: 20061207
  4. MAGNESIUM PHOSPHATE [Concomitant]
     Route: 048
     Dates: start: 20060810, end: 20070101
  5. POTASSIUM CHLORIDE [Concomitant]
     Route: 048
     Dates: start: 20060831, end: 20070101
  6. SIMVASTIN [Concomitant]
     Route: 048
     Dates: start: 20060101, end: 20070201
  7. ENALAPRIL MALEATE [Concomitant]
     Indication: HYPERTENSION
     Route: 048
     Dates: end: 20070201
  8. BENDROFLUAZIDE [Concomitant]
     Indication: HYPERTENSION
     Route: 048
     Dates: end: 20070201
  9. EMOLLIENT [Concomitant]
     Route: 061
     Dates: start: 20051201, end: 20070101

REACTIONS (5)
  - CEREBRAL INFARCTION [None]
  - ENDOCARDITIS STAPHYLOCOCCAL [None]
  - HEMIPARESIS [None]
  - LUNG INFILTRATION [None]
  - RENAL FAILURE ACUTE [None]
